FAERS Safety Report 6497186-4 (Version None)
Quarter: 2009Q4

REPORT INFORMATION
  Report Type: 
  Country: None (occurrence: None)
  Receive Date: 20091215
  Receipt Date: 20090527
  Transmission Date: 20100525
  Serious: No
  Sender: FDA-Public Use
  Company Number: A0786445A

PATIENT
  Age: 10 Year
  Sex: Male

DRUGS (2)
  1. AVODART [Suspect]
     Indication: DRUG USE FOR UNKNOWN INDICATION
     Dosage: 1CAP SINGLE DOSE
     Route: 048
     Dates: start: 20090527
  2. NO CONCURRENT MEDICATION [Concomitant]

REACTIONS (1)
  - ACCIDENTAL EXPOSURE [None]
